FAERS Safety Report 4602375-7 (Version None)
Quarter: 2005Q1

REPORT INFORMATION
  Report Type: 
  Country: None (occurrence: None)
  Receive Date: 20050307
  Receipt Date: 20050222
  Transmission Date: 20050727
  Serious: Yes (Hospitalization)
  Sender: FDA-Public Use
  Company Number: 2005-BP-02863BP

PATIENT
  Sex: Female

DRUGS (1)
  1. CATAPRES [Suspect]
     Indication: HYPERTENSION
     Dosage: 0.3 MG (7.5 MG, 1 PATCH Q WEEK), TO
     Route: 061
     Dates: end: 20050201

REACTIONS (7)
  - APPLICATION SITE DISCOLOURATION [None]
  - APPLICATION SITE PRURITUS [None]
  - ARTERIAL RUPTURE [None]
  - CARDIAC ARREST [None]
  - CARDIAC DISORDER [None]
  - IATROGENIC INJURY [None]
  - STENT PLACEMENT [None]
